FAERS Safety Report 26072007 (Version 1)
Quarter: 2025Q4

REPORT INFORMATION
  Report Type: Spontaneous
  Country: EU (occurrence: EU)
  Receive Date: 20251120
  Receipt Date: 20251120
  Transmission Date: 20260118
  Serious: Yes (Other)
  Sender: MYLAN
  Company Number: None

PATIENT
  Age: 40 Year
  Sex: Male

DRUGS (3)
  1. PREGABALIN [Suspect]
     Active Substance: PREGABALIN
     Indication: Product used for unknown indication
     Dosage: NR
  2. CANNABIS SATIVA SUBSP. INDICA TOP [Suspect]
     Active Substance: CANNABIS SATIVA SUBSP. INDICA TOP
     Indication: Product used for unknown indication
     Dosage: 3 JOINTS/DAY
     Dates: start: 2023
  3. ALCOHOL [Suspect]
     Active Substance: ALCOHOL
     Indication: Product used for unknown indication
     Dosage: UNK (6 TO 11 BEERS OF 50 CL AT 8.6 PERCENT ABV/DAY PLUS/MINUS HARD LIQUOR (WHISKEY, VODKA))

REACTIONS (2)
  - Substance use disorder [Not Recovered/Not Resolved]
  - Drug use disorder [Not Recovered/Not Resolved]
